FAERS Safety Report 19025481 (Version 1)
Quarter: 2021Q1

REPORT INFORMATION
  Report Type: Report from Study
  Country: BE (occurrence: BE)
  Receive Date: 20210318
  Receipt Date: 20210318
  Transmission Date: 20210420
  Serious: Yes (Other)
  Sender: FDA-Public Use
  Company Number: BE-ASTELLAS-2021US009342

PATIENT

DRUGS (3)
  1. TACROLIMUS. [Suspect]
     Active Substance: TACROLIMUS
     Indication: LIVER TRANSPLANT
     Dosage: UNK UNK, UNKNOWN FREQ.
     Route: 065
  2. GLAZIDIM [Concomitant]
     Active Substance: CEFTAZIDIME
     Indication: ANTIBIOTIC PROPHYLAXIS
     Dosage: (SINGLE SHOT) UNK UNK, UNKNOWN FREQ.
     Route: 042
  3. ZINACEF [CEFUROXIME] [Concomitant]
     Indication: ANTIBIOTIC PROPHYLAXIS
     Dosage: (SINGLE SHOT) UNK UNK, UNKNOWN FREQ.
     Route: 042

REACTIONS (2)
  - Liver transplant failure [Unknown]
  - Neurotoxicity [Unknown]
